FAERS Safety Report 24928542 (Version 3)
Quarter: 2025Q3

REPORT INFORMATION
  Report Type: Report from Study
  Country: EU (occurrence: EU)
  Receive Date: 20250205
  Receipt Date: 20250827
  Transmission Date: 20251020
  Serious: Yes (Other)
  Sender: PFIZER
  Company Number: EU-GSK-FR2024GSK129502

PATIENT
  Age: 74 Year
  Sex: Female
  Weight: 100 kg

DRUGS (3)
  1. CARBOPLATIN [Suspect]
     Active Substance: CARBOPLATIN
     Indication: Endometrial cancer
     Dosage: 4 MG/ML/MIN, Q3W  (INTRAVENOUS INFUSION)
     Route: 042
     Dates: start: 20240819
  2. PACLITAXEL [Suspect]
     Active Substance: PACLITAXEL
     Indication: Endometrial cancer
     Dosage: 140 MG/M2, Q3W (INTRAVENOUS INFUSION)
     Route: 042
     Dates: start: 20240819, end: 20240909
  3. DOSTARLIMAB [Suspect]
     Active Substance: DOSTARLIMAB
     Indication: Endometrial cancer
     Dosage: 500 MG, EVERY 3 WEEKS (INTRAVENOUS INFUSION)
     Route: 042
     Dates: start: 20240819

REACTIONS (2)
  - Neuropathy peripheral [Not Recovered/Not Resolved]
  - Colon operation [Unknown]

NARRATIVE: CASE EVENT DATE: 20240927
